FAERS Safety Report 8961102 (Version 1)
Quarter: 2012Q4

REPORT INFORMATION
  Report Type: 
  Country: PH (occurrence: PH)
  Receive Date: 20121212
  Receipt Date: 20121212
  Transmission Date: 20130627
  Serious: Yes (Other)
  Sender: FDA-Public Use
  Company Number: PH-PFIZER INC-2012310499

PATIENT
  Age: 26 Year
  Sex: Female

DRUGS (2)
  1. LYRICA [Suspect]
     Indication: NUMBNESS
     Dosage: 75 mg, 2x/day
  2. VITAMIN B COMPLEX [Concomitant]

REACTIONS (2)
  - Convulsion [Unknown]
  - Off label use [Unknown]
